FAERS Safety Report 14208194 (Version 1)
Quarter: 2017Q4

REPORT INFORMATION
  Report Type: Spontaneous
  Country: US (occurrence: US)
  Receive Date: 20171120
  Receipt Date: 20171120
  Transmission Date: 20180321
  Serious: Yes (Disabling)
  Sender: FDA-Public Use
  Company Number: None

PATIENT
  Sex: Female
  Weight: 56.25 kg

DRUGS (5)
  1. LEMON BALM [Concomitant]
  2. BENADRYL [Concomitant]
     Active Substance: DIPHENHYDRAMINE HYDROCHLORIDE
  3. TRIAMCINOLONE [Suspect]
     Active Substance: TRIAMCINOLONE
     Indication: ECZEMA
  4. LYSINE [Concomitant]
     Active Substance: LYSINE
  5. HYDROXYZINE [Concomitant]
     Active Substance: HYDROXYZINE HYDROCHLORIDE

REACTIONS (8)
  - Hypersensitivity [None]
  - Fatigue [None]
  - Anxiety [None]
  - Pruritus [None]
  - Inflammation [None]
  - Insomnia [None]
  - Drug dependence [None]
  - Skin burning sensation [None]

NARRATIVE: CASE EVENT DATE: 20160214
